FAERS Safety Report 24616686 (Version 2)
Quarter: 2024Q4

REPORT INFORMATION
  Report Type: Report from Study
  Country: US (occurrence: US)
  Receive Date: 20241114
  Receipt Date: 20241209
  Transmission Date: 20250115
  Serious: Yes (Other)
  Sender: ALEXION PHARMACEUTICALS
  Company Number: US-AstraZeneca-CH-00744208A

PATIENT

DRUGS (6)
  1. ULTOMIRIS [Suspect]
     Active Substance: RAVULIZUMAB-CWVZ
     Indication: Atypical haemolytic uraemic syndrome
     Dosage: UNK
  2. ULTOMIRIS [Suspect]
     Active Substance: RAVULIZUMAB-CWVZ
     Dosage: UNK
     Route: 042
  3. ULTOMIRIS [Suspect]
     Active Substance: RAVULIZUMAB-CWVZ
     Dosage: UNK
  4. ULTOMIRIS [Suspect]
     Active Substance: RAVULIZUMAB-CWVZ
     Dosage: UNK
     Route: 042
  5. PENICILLIN [Concomitant]
     Active Substance: PENICILLIN
     Dosage: 500 MILLIGRAM, BID
     Route: 065
  6. PENICILLIN [Concomitant]
     Active Substance: PENICILLIN
     Dosage: 500 MILLIGRAM, BID
     Route: 065

REACTIONS (2)
  - Atrial fibrillation [Unknown]
  - Blood pressure increased [Unknown]
